FAERS Safety Report 4870440-5 (Version None)
Quarter: 2006Q1

REPORT INFORMATION
  Report Type: 
  Country: None (occurrence: None)
  Receive Date: 20060103
  Receipt Date: 20050510
  Transmission Date: 20060701
  Serious: No
  Sender: FDA-Public Use
  Company Number: US-BRISTOL-MYERS SQUIBB COMPANY-12962973

PATIENT
  Age: 42 Year
  Sex: Male

DRUGS (2)
  1. TRAZODONE HCL [Suspect]
     Indication: DEPRESSION
     Dates: start: 20050310
  2. AMBIEN [Concomitant]
     Dates: start: 20050311

REACTIONS (1)
  - SUICIDAL IDEATION [None]
